FAERS Safety Report 9794574 (Version 1)
Quarter: 2014Q1

REPORT INFORMATION
  Report Type: Spontaneous
  Country: US (occurrence: US)
  Receive Date: 20140102
  Receipt Date: 20140102
  Transmission Date: 20141002
  Serious: No
  Sender: FDA-Public Use
  Company Number: US-ASTRAZENECA-2013SE47515

PATIENT
  Age: 69 Year
  Sex: Male
  Weight: 115.7 kg

DRUGS (18)
  1. BRILINTA [Suspect]
     Indication: ANTICOAGULANT THERAPY
     Route: 048
     Dates: start: 2013
  2. FAMOTIDINE [Suspect]
     Route: 065
     Dates: start: 201211
  3. UNSPECIFIED BLOOD THINNER THERAPY [Suspect]
     Route: 065
  4. OMEPRAZOLE [Suspect]
     Indication: GASTROOESOPHAGEAL REFLUX DISEASE
     Route: 048
     Dates: start: 201211
  5. LEVOTHYROXINE [Concomitant]
     Route: 048
  6. GLIPIZIDE [Concomitant]
     Indication: DIABETES MELLITUS
     Route: 048
  7. OXYCODINE [Concomitant]
     Indication: PAIN
     Route: 048
  8. VITAMIN D [Concomitant]
     Indication: SUPPLEMENTATION THERAPY
     Route: 048
  9. RANOLAZINE [Concomitant]
     Route: 048
  10. ALBUTEROL [Concomitant]
     Indication: CHRONIC OBSTRUCTIVE PULMONARY DISEASE
     Dosage: TID
     Route: 055
  11. UNSPECIFIED NEBULIZER [Concomitant]
     Indication: CHRONIC OBSTRUCTIVE PULMONARY DISEASE
     Route: 055
  12. NIACIN [Concomitant]
     Indication: BLOOD CHOLESTEROL ABNORMAL
     Route: 048
  13. C- Q10 [Concomitant]
     Indication: BLOOD CHOLESTEROL ABNORMAL
     Route: 048
  14. FISH OIL [Concomitant]
     Indication: CARDIAC DISORDER
     Route: 048
  15. METOPROLOL ISOSORBIDE [Concomitant]
     Indication: ANGINA PECTORIS
     Route: 048
  16. LOSHARTIN [Concomitant]
     Indication: HYPERTENSION
  17. SIMVASTATIN [Concomitant]
     Indication: CARDIAC DISORDER
     Route: 048
  18. TAMSULOSIN [Concomitant]
     Indication: PROSTATOMEGALY
     Route: 048

REACTIONS (4)
  - Nodule [Unknown]
  - Irritability [Unknown]
  - Pruritus [Unknown]
  - Rash [Unknown]
